FAERS Safety Report 8173760-4 (Version None)
Quarter: 2012Q1

REPORT INFORMATION
  Report Type: 
  Country: None (occurrence: None)
  Receive Date: 20120224
  Receipt Date: 20120215
  Transmission Date: 20120608
  Serious: Yes (Hospitalization, Other)
  Sender: FDA-Public Use
  Company Number: 130040

PATIENT
  Age: 36 Year
  Sex: Female
  Weight: 49 kg

DRUGS (1)
  1. LEVOTHYROXINE SODIUM [Suspect]
     Dosage: 100 UG.DAY

REACTIONS (8)
  - MEDICATION ERROR [None]
  - DRUG ABUSE [None]
  - HYPOCALCAEMIA [None]
  - LACTIC ACIDOSIS [None]
  - RENAL FAILURE ACUTE [None]
  - HYPOKALAEMIA [None]
  - RENAL INJURY [None]
  - HYPONATRAEMIA [None]
